FAERS Safety Report 7349939-8 (Version None)
Quarter: 2011Q1

REPORT INFORMATION
  Report Type: 
  Country: None (occurrence: None)
  Receive Date: 20110202
  Receipt Date: 20110218
  Transmission Date: 20110831
  Serious: Yes (Life-Threatening, Hospitalization)
  Sender: FDA-Public Use
  Company Number: 2011000652

PATIENT
  Age: 64 Year
  Sex: Male

DRUGS (13)
  1. VICODIN [Concomitant]
  2. OMEPRAZOLE [Concomitant]
  3. MIRTAZAPINE [Concomitant]
  4. CARBOPLATIN [Suspect]
     Indication: LUNG ADENOCARCINOMA
     Dosage: 384 MG, 1X PER 3 WEEK, INTRAVENOUS
     Route: 042
     Dates: start: 20100818, end: 20101020
  5. MULTI-VITAMIN [Concomitant]
  6. DOCETAXEL [Suspect]
     Indication: LUNG ADENOCARCINOMA
     Dosage: 105 MG, 1X, PER 3 WEEK, INTRAVENOUS
     Route: 042
     Dates: start: 20100818, end: 20101020
  7. MEGACE [Concomitant]
  8. COMBIVENT [Concomitant]
  9. BEVACIZUMAB [Suspect]
     Indication: LUNG ADENOCARCINOMA
     Dosage: 940 MG, 1X PER 3 WEEK, INTRAVENOUS
     Route: 042
     Dates: start: 20100818, end: 20101215
  10. ERLOTINIB (ERLOTINIB) (TABLET) (ERLOTINIB) [Suspect]
     Indication: LUNG ADENOCARCINOMA
     Dosage: (150 MG, QD), ORAL
     Route: 048
     Dates: start: 20101110, end: 20101117
  11. FERROUS SULFATE TAB [Concomitant]
  12. VERAMYST [Concomitant]
  13. LOPRESSOR [Concomitant]

REACTIONS (7)
  - BRONCHIAL FISTULA [None]
  - PNEUMOTHORAX [None]
  - NON-SMALL CELL LUNG CANCER [None]
  - METASTASES TO LYMPH NODES [None]
  - SINUS TACHYCARDIA [None]
  - CONFUSIONAL STATE [None]
  - NEOPLASM RECURRENCE [None]
